FAERS Safety Report 5848356-7 (Version None)
Quarter: 2008Q3

REPORT INFORMATION
  Report Type: 
  Country: None (occurrence: None)
  Receive Date: 20080814
  Receipt Date: 20080729
  Transmission Date: 20090109
  Serious: Yes (Other)
  Sender: FDA-Public Use
  Company Number: 8035577

PATIENT
  Sex: Female

DRUGS (2)
  1. PREDNISOLONE [Suspect]
     Indication: CROHN'S DISEASE
     Dates: start: 19970101
  2. PREDNISOLONE [Suspect]
     Indication: CROHN'S DISEASE
     Dosage: 40 MG /D
     Dates: start: 20050101

REACTIONS (4)
  - EPILEPSY [None]
  - MALAISE [None]
  - SKIN DISORDER [None]
  - VASCULITIS [None]
